FAERS Safety Report 14610232 (Version 1)
Quarter: 2018Q1

REPORT INFORMATION
  Report Type: Report from Study
  Country: US (occurrence: US)
  Receive Date: 20180307
  Receipt Date: 20180307
  Transmission Date: 20180509
  Serious: Yes (Death, Hospitalization)
  Sender: FDA-Public Use
  Company Number: US-PFIZER INC-2018086253

PATIENT
  Age: 64 Year
  Sex: Female

DRUGS (4)
  1. PROVERA [Suspect]
     Active Substance: MEDROXYPROGESTERONE ACETATE
     Indication: METASTASES TO BONE
     Dosage: 200 MG, DAILY
     Route: 048
     Dates: start: 19610801
  2. PROVERA [Suspect]
     Active Substance: MEDROXYPROGESTERONE ACETATE
     Indication: BREAST CANCER
     Dosage: 50 MG, DAILY
     Route: 048
     Dates: start: 19610910
  3. PROVERA [Suspect]
     Active Substance: MEDROXYPROGESTERONE ACETATE
     Dosage: 150 MG, DAILY
     Route: 048
     Dates: start: 1961
  4. PROVERA [Suspect]
     Active Substance: MEDROXYPROGESTERONE ACETATE
     Dosage: 100 MG, DAILY
     Route: 048
     Dates: start: 1961

REACTIONS (1)
  - Hypercalcaemia [Not Recovered/Not Resolved]
